FAERS Safety Report 19099144 (Version 2)
Quarter: 2021Q2

REPORT INFORMATION
  Report Type: Report from Study
  Country: BR (occurrence: BR)
  Receive Date: 20210406
  Receipt Date: 20210512
  Transmission Date: 20210717
  Serious: Yes (Other)
  Sender: FDA-Public Use
  Company Number: NVSC2021BR073487

PATIENT
  Sex: Female

DRUGS (1)
  1. KISQALI [Suspect]
     Active Substance: RIBOCICLIB
     Indication: PRODUCT USED FOR UNKNOWN INDICATION
     Dosage: UNK
     Route: 065
     Dates: start: 20210201, end: 20210428

REACTIONS (17)
  - Gait disturbance [Unknown]
  - Fatigue [Unknown]
  - Asthenia [Unknown]
  - Metastases to bone [Unknown]
  - Boredom [Unknown]
  - Drug ineffective [Not Recovered/Not Resolved]
  - Dysstasia [Unknown]
  - Sleep disorder [Not Recovered/Not Resolved]
  - Tumour marker abnormal [Not Recovered/Not Resolved]
  - Agitation [Unknown]
  - Insomnia [Unknown]
  - Peripheral swelling [Unknown]
  - Nightmare [Unknown]
  - Malaise [Unknown]
  - Rib fracture [Unknown]
  - Nocturia [Unknown]
  - Arthralgia [Unknown]
